FAERS Safety Report 8440650-9 (Version None)
Quarter: 2012Q2

REPORT INFORMATION
  Report Type: 
  Country: None (occurrence: None)
  Receive Date: 20120615
  Receipt Date: 20120606
  Transmission Date: 20120825
  Serious: Yes (Life-Threatening, Disabling)
  Sender: FDA-Public Use
  Company Number: US-MERCK-1206USA01229

PATIENT

DRUGS (3)
  1. ALOXI [Suspect]
     Route: 065
  2. FOSAPREPITANT DIMEGLUMINE [Suspect]
     Route: 041
  3. FOSAPREPITANT DIMEGLUMINE [Suspect]
     Indication: PROPHYLAXIS OF NAUSEA AND VOMITING
     Route: 041
     Dates: start: 20120101, end: 20120101

REACTIONS (3)
  - ADVERSE REACTION [None]
  - TACHYCARDIA [None]
  - HYPOTENSION [None]
